FAERS Safety Report 4620158-9 (Version None)
Quarter: 2005Q1

REPORT INFORMATION
  Report Type: 
  Country: None (occurrence: None)
  Receive Date: 20050324
  Receipt Date: 20050308
  Transmission Date: 20050727
  Serious: Yes (Hospitalization, Other)
  Sender: FDA-Public Use
  Company Number: S05-GER-00141-01

PATIENT
  Age: 69 Year
  Sex: Female

DRUGS (4)
  1. CITALOPRAM HYDROBROMIDE [Suspect]
     Indication: DEPRESSION
     Dosage: 120 MG QD PO
     Route: 048
     Dates: start: 20041214, end: 20041228
  2. CITALOPRAM HYDROBROMIDE [Suspect]
     Indication: DEPRESSION
     Dosage: 30 MG QD
     Dates: start: 20041230
  3. LORAZEPAM [Suspect]
     Indication: RESTLESSNESS
     Dosage: 3 MG QD PO
     Route: 048
     Dates: start: 20041019
  4. CARBAMAZEPINE [Concomitant]

REACTIONS (11)
  - BLOOD PRESSURE FLUCTUATION [None]
  - CONDITION AGGRAVATED [None]
  - CONFUSIONAL STATE [None]
  - DEPRESSION [None]
  - DIARRHOEA [None]
  - DIFFICULTY IN WALKING [None]
  - DIZZINESS [None]
  - DRUG LEVEL BELOW THERAPEUTIC [None]
  - FALL [None]
  - HYPERTENSION [None]
  - TREMOR [None]
